FAERS Safety Report 14828681 (Version 1)
Quarter: 2018Q2

REPORT INFORMATION
  Report Type: Spontaneous
  Country: US (occurrence: US)
  Receive Date: 20180430
  Receipt Date: 20180430
  Transmission Date: 20180711
  Serious: No
  Sender: FDA-Public Use
  Company Number: US-APOTEX-2017AP010809

PATIENT
  Sex: Female

DRUGS (1)
  1. IBANDRONATE SODIUM. [Suspect]
     Active Substance: IBANDRONATE SODIUM
     Indication: PRODUCT USED FOR UNKNOWN INDICATION
     Dosage: UNK
     Route: 065

REACTIONS (11)
  - Arthralgia [Unknown]
  - Dry mouth [Unknown]
  - Pain in jaw [Unknown]
  - Ageusia [Unknown]
  - Nausea [Unknown]
  - Back pain [Unknown]
  - Insomnia [Unknown]
  - Decreased appetite [Unknown]
  - Dyspepsia [Unknown]
  - Dysgeusia [Unknown]
  - Lethargy [Unknown]
